FAERS Safety Report 6166400-7 (Version None)
Quarter: 2009Q2

REPORT INFORMATION
  Report Type: 
  Country: None (occurrence: None)
  Receive Date: 20090422
  Receipt Date: 20090422
  Transmission Date: 20091009
  Serious: No
  Sender: FDA-Public Use
  Company Number: None

PATIENT
  Age: 73 Year
  Sex: Female

DRUGS (2)
  1. HEPARIN SODIUM [Suspect]
     Indication: ATRIAL FIBRILLATION
     Dosage: TITRATE TO XAUFH
     Dates: start: 20090314, end: 20090401
  2. HEPARIN SODIUM [Suspect]
     Indication: HEART VALVE REPLACEMENT
     Dosage: TITRATE TO XAUFH
     Dates: start: 20090314, end: 20090401

REACTIONS (1)
  - THROMBOCYTOPENIA [None]
